FAERS Safety Report 23482754 (Version 1)
Quarter: 2024Q1

REPORT INFORMATION
  Report Type: Spontaneous
  Country: DE (occurrence: None)
  Receive Date: 20240205
  Receipt Date: 20240205
  Transmission Date: 20240410
  Serious: Yes (Death)
  Sender: FDA-Public Use
  Company Number: 2024A028318

PATIENT
  Age: 83 Year
  Sex: Male

DRUGS (1)
  1. ANDEXANET ALFA [Suspect]
     Active Substance: ANDEXANET ALFA
     Route: 040

REACTIONS (2)
  - Loss of consciousness [Fatal]
  - Musculoskeletal disorder [Fatal]
